FAERS Safety Report 14527015 (Version 1)
Quarter: 2018Q1

REPORT INFORMATION
  Report Type: Spontaneous
  Country: US (occurrence: US)
  Receive Date: 20180212
  Receipt Date: 20180212
  Transmission Date: 20180509
  Serious: Yes (Life-Threatening, Hospitalization)
  Sender: FDA-Public Use
  Company Number: None

PATIENT
  Age: 90 Year
  Sex: Female
  Weight: 53 kg

DRUGS (18)
  1. ESCITALOPRAM [Concomitant]
     Active Substance: ESCITALOPRAM OXALATE
  2. DONEPEZIL. [Concomitant]
     Active Substance: DONEPEZIL
  3. POTASSIUM CHLORIDE. [Concomitant]
     Active Substance: POTASSIUM CHLORIDE
  4. PANTOPRAZOLE [Concomitant]
     Active Substance: PANTOPRAZOLE
  5. LUTEIN [Concomitant]
     Active Substance: LUTEIN
  6. AMLODIPINE [Concomitant]
     Active Substance: AMLODIPINE BESYLATE
  7. ALPRAZOLAM. [Concomitant]
     Active Substance: ALPRAZOLAM
  8. LEVOTHYROXINE. [Concomitant]
     Active Substance: LEVOTHYROXINE
  9. VITAMIN D [Concomitant]
     Active Substance: CHOLECALCIFEROL
  10. APIXABAN [Suspect]
     Active Substance: APIXABAN
     Indication: CEREBROVASCULAR ACCIDENT
     Route: 048
     Dates: end: 20180123
  11. DIGOXIN. [Concomitant]
     Active Substance: DIGOXIN
  12. ASPIRIN. [Concomitant]
     Active Substance: ASPIRIN
  13. METOPROLOL. [Concomitant]
     Active Substance: METOPROLOL
  14. MIRTAZAPINE. [Concomitant]
     Active Substance: MIRTAZAPINE
  15. QUETIAPINE. [Concomitant]
     Active Substance: QUETIAPINE
  16. CRANBERRY. [Concomitant]
     Active Substance: CRANBERRY
  17. APIXABAN [Suspect]
     Active Substance: APIXABAN
     Indication: ATRIAL FIBRILLATION
     Route: 048
     Dates: end: 20180123
  18. SULFAMETHOXAZOLE-TRIMETHOPRIM [Concomitant]
     Active Substance: SULFAMETHOXAZOLE\TRIMETHOPRIM

REACTIONS (2)
  - Gastrointestinal haemorrhage [None]
  - Iron deficiency anaemia [None]

NARRATIVE: CASE EVENT DATE: 20180124
